FAERS Safety Report 11906373 (Version 1)
Quarter: 2016Q1

REPORT INFORMATION
  Report Type: Spontaneous
  Country: US (occurrence: US)
  Receive Date: 20160111
  Receipt Date: 20160111
  Transmission Date: 20160526
  Serious: No
  Sender: FDA-Public Use
  Company Number: US-PFIZER INC-2015448206

PATIENT
  Age: 91 Year
  Sex: Female

DRUGS (5)
  1. CODEINE SULFATE. [Suspect]
     Active Substance: CODEINE SULFATE
     Dosage: UNK
  2. E-MYCIN [Suspect]
     Active Substance: ERYTHROMYCIN
     Dosage: UNK
  3. FLEXERIL [Suspect]
     Active Substance: CYCLOBENZAPRINE HYDROCHLORIDE
     Dosage: UNK
  4. CORTISONE [Suspect]
     Active Substance: CORTISONE\HYDROCORTISONE
     Dosage: UNK
  5. SULFUR. [Suspect]
     Active Substance: SULFUR
     Dosage: UNK

REACTIONS (1)
  - Drug hypersensitivity [Unknown]
